FAERS Safety Report 5943239-6 (Version None)
Quarter: 2008Q4

REPORT INFORMATION
  Report Type: 
  Country: None (occurrence: None)
  Receive Date: 20081106
  Receipt Date: 20081101
  Transmission Date: 20090506
  Serious: Yes (Other)
  Sender: FDA-Public Use
  Company Number: GB-ROCHE-594809

PATIENT
  Sex: Female
  Weight: 85.7 kg

DRUGS (4)
  1. ORLISTAT [Suspect]
     Indication: OBESITY
     Route: 048
     Dates: start: 20071118
  2. TRAMADOL HCL [Concomitant]
     Indication: BACK PAIN
     Dosage: LONG TERM
     Route: 048
  3. ACETAMINOPHEN W/ CODEINE [Concomitant]
     Indication: BACK PAIN
     Dosage: AS NEEDED
     Route: 048
  4. BRUFEN [Concomitant]
     Indication: BACK PAIN
     Dosage: AS NEEDED
     Route: 048

REACTIONS (1)
  - OVARIAN CYST [None]
